FAERS Safety Report 7859865-3 (Version None)
Quarter: 2011Q4

REPORT INFORMATION
  Report Type: 
  Country: None (occurrence: None)
  Receive Date: 20111025
  Receipt Date: 20111013
  Transmission Date: 20120403
  Serious: Yes (Hospitalization)
  Sender: FDA-Public Use
  Company Number: 2011MA015089

PATIENT
  Age: 39 Year
  Sex: Male

DRUGS (2)
  1. SPORTDRENNA [Concomitant]
  2. IBUPROFEN [Suspect]
     Indication: MUSCULOSKELETAL PAIN
     Dosage: PO
     Route: 048
     Dates: start: 20100821

REACTIONS (4)
  - HEADACHE [None]
  - RENAL FAILURE [None]
  - FLANK PAIN [None]
  - HYPERTENSION [None]
